FAERS Safety Report 5655543-X (Version None)
Quarter: 2008Q1

REPORT INFORMATION
  Report Type: 
  Country: None (occurrence: None)
  Receive Date: 20080307
  Receipt Date: 20080304
  Transmission Date: 20080703
  Serious: Yes (Other)
  Sender: FDA-Public Use
  Company Number: US-SANOFI-SYNTHELABO-A03200800773

PATIENT
  Sex: Female

DRUGS (1)
  1. AMBIEN CR [Suspect]
     Indication: INSOMNIA
     Route: 048
     Dates: start: 20080110, end: 20080101

REACTIONS (3)
  - AMNESIA [None]
  - ROAD TRAFFIC ACCIDENT [None]
  - SOMNAMBULISM [None]
